FAERS Safety Report 12368440 (Version 2)
Quarter: 2016Q3

REPORT INFORMATION
  Report Type: Spontaneous
  Country: US (occurrence: US)
  Receive Date: 20160513
  Receipt Date: 20160818
  Transmission Date: 20161109
  Serious: Yes (Hospitalization, Other)
  Sender: FDA-Public Use
  Company Number: US-BAYER-2016-092479

PATIENT
  Age: 63 Year
  Sex: Male

DRUGS (4)
  1. XOFIGO [Suspect]
     Active Substance: RADIUM RA-223 DICHLORIDE
     Indication: PROSTATE CANCER STAGE IV
     Dosage: UNK
     Route: 042
     Dates: start: 20160401, end: 20160401
  2. MS CONTIN [Concomitant]
     Active Substance: MORPHINE SULFATE
  3. HYDROCODONE [Concomitant]
     Active Substance: HYDROCODONE
  4. XOFIGO [Suspect]
     Active Substance: RADIUM RA-223 DICHLORIDE
     Indication: METASTASES TO BONE
     Dosage: UNK
     Route: 042
     Dates: start: 20160501, end: 20160501

REACTIONS (8)
  - Prostate cancer stage IV [None]
  - Nausea [Unknown]
  - Metastases to adrenals [None]
  - Central nervous system mass [None]
  - Spinal cord compression [None]
  - Sepsis [None]
  - Bone pain [Unknown]
  - Vomiting [Unknown]
